FAERS Safety Report 4826543-4 (Version None)
Quarter: 2005Q4

REPORT INFORMATION
  Report Type: 
  Country: None (occurrence: None)
  Receive Date: 20051014
  Receipt Date: 20050708
  Transmission Date: 20060501
  Serious: Yes (Other)
  Sender: FDA-Public Use
  Company Number: 2005099248

PATIENT
  Sex: Male
  Weight: 81.1939 kg

DRUGS (2)
  1. MACUGEN [Suspect]
     Indication: MACULAR DEGENERATION
     Dosage: INTRAVITREOUS
     Dates: start: 20050707
  2. VISUDYNE [Suspect]
     Indication: MACULAR DEGENERATION
     Dates: start: 20050707

REACTIONS (2)
  - VISION BLURRED [None]
  - VISUAL DISTURBANCE [None]
